FAERS Safety Report 11253887 (Version 2)
Quarter: 2015Q3

REPORT INFORMATION
  Report Type: Report from Study
  Country: AR (occurrence: AR)
  Receive Date: 20150709
  Receipt Date: 20150724
  Transmission Date: 20151125
  Serious: Yes (Other)
  Sender: FDA-Public Use
  Company Number: PHHY2015AR080454

PATIENT
  Age: 35 Year
  Sex: Male

DRUGS (3)
  1. GILENYA [Suspect]
     Active Substance: FINGOLIMOD HYDROCHLORIDE
     Dosage: UNK
     Route: 065
  2. GILENYA [Suspect]
     Active Substance: FINGOLIMOD HYDROCHLORIDE
     Dosage: UNK, QOD
     Route: 065
  3. GILENYA [Suspect]
     Active Substance: FINGOLIMOD HYDROCHLORIDE
     Indication: MULTIPLE SCLEROSIS
     Dosage: UNK
     Route: 065
     Dates: start: 201406

REACTIONS (6)
  - Visual acuity reduced [Recovered/Resolved]
  - Multiple sclerosis relapse [Recovered/Resolved]
  - Prescribed underdose [Unknown]
  - Optic neuritis [Recovered/Resolved]
  - Off label use [Unknown]
  - Hepatic enzyme increased [Recovered/Resolved]
